FAERS Safety Report 4609058-8 (Version None)
Quarter: 2005Q1

REPORT INFORMATION
  Report Type: 
  Country: None (occurrence: None)
  Receive Date: 20050311
  Receipt Date: 20050228
  Transmission Date: 20050727
  Serious: Yes (Other)
  Sender: FDA-Public Use
  Company Number: 2005-00743

PATIENT
  Sex: Female

DRUGS (1)
  1. FIORINAL [Suspect]
     Indication: TENSION HEADACHE
     Dosage: PRN, ORAL
     Route: 048

REACTIONS (2)
  - FALL [None]
  - SKULL FRACTURE [None]
